FAERS Safety Report 10396588 (Version 1)
Quarter: 2014Q1

REPORT INFORMATION
  Report Type: Spontaneous
  Country: US (occurrence: None)
  Receive Date: 20130815
  Receipt Date: 20130815
  Transmission Date: 20141002
  Serious: Yes (Other)
  Sender: FDA-Public Use
  Company Number: ADR-2012-01204

PATIENT
  Age: 60 Year
  Sex: Female

DRUGS (1)
  1. BACLOFEN INTRATHECAL (BACLOFEN INJECTION) [Suspect]
     Indication: CANCER PAIN

REACTIONS (3)
  - Injection site anaesthesia [None]
  - Incorrect route of drug administration [None]
  - Respiratory depression [None]
